FAERS Safety Report 6958696-6 (Version None)
Quarter: 2010Q3

REPORT INFORMATION
  Report Type: 
  Country: None (occurrence: None)
  Receive Date: 20100831
  Receipt Date: 20100819
  Transmission Date: 20110219
  Serious: No
  Sender: FDA-Public Use
  Company Number: US-B.I. PHARMACEUTICALS,INC./RIDGEFIELD-2010-BP-09408BP

PATIENT
  Age: 67 Year
  Sex: Female

DRUGS (6)
  1. MICARDIS HCT [Suspect]
     Indication: HYPERTENSION
     Route: 048
     Dates: start: 20100501, end: 20100818
  2. TRILIPIX [Suspect]
     Indication: BLOOD TRIGLYCERIDES INCREASED
  3. METOPROLOL TARTRATE [Concomitant]
     Indication: HYPERTENSION
  4. CRESTOR [Concomitant]
  5. LOVAZA [Concomitant]
     Indication: CARDIOVASCULAR EVENT PROPHYLAXIS
  6. ASPIRIN [Concomitant]

REACTIONS (1)
  - LIP SWELLING [None]
